FAERS Safety Report 9185934 (Version 1)
Quarter: 2013Q1

REPORT INFORMATION
  Report Type: Report from Study
  Country: BR (occurrence: BR)
  Receive Date: 20130325
  Receipt Date: 20130325
  Transmission Date: 20140127
  Serious: Yes (Other)
  Sender: FDA-Public Use
  Company Number: BR-ABBOTT-12P-020-0969819-00

PATIENT
  Age: 66 Year
  Sex: Male
  Weight: 106 kg

DRUGS (7)
  1. HUMIRA 40 MG/ 0.8 ML PRE-FILLED SYRINGE [Suspect]
     Indication: RHEUMATOID ARTHRITIS
     Dates: start: 2009
  2. LOSARTAN [Concomitant]
     Indication: HYPERTENSION
     Route: 048
     Dates: start: 2009
  3. MISILIP (?) [Concomitant]
     Indication: BLOOD CHOLESTEROL INCREASED
     Route: 048
     Dates: start: 201201
  4. METHOTREXATE [Concomitant]
     Indication: RHEUMATOID ARTHRITIS
  5. NIFEDIPINE [Concomitant]
     Indication: HYPERTENSION
     Dates: start: 201208
  6. ARADOIS [Concomitant]
     Indication: HYPERTENSION
     Dates: start: 201208
  7. UNKNOWN MEDICATION [Concomitant]
     Indication: MICTURITION DISORDER

REACTIONS (8)
  - Unevaluable event [Not Recovered/Not Resolved]
  - Cerebrovascular accident [Recovered/Resolved with Sequelae]
  - Memory impairment [Unknown]
  - Blood pressure inadequately controlled [Not Recovered/Not Resolved]
  - Gait disturbance [Not Recovered/Not Resolved]
  - Arthropathy [Not Recovered/Not Resolved]
  - Arthropathy [Not Recovered/Not Resolved]
  - Tooth disorder [Not Recovered/Not Resolved]
